FAERS Safety Report 13338264 (Version 2)
Quarter: 2017Q2

REPORT INFORMATION
  Report Type: Spontaneous
  Country: US (occurrence: US)
  Receive Date: 20170315
  Receipt Date: 20170418
  Transmission Date: 20170830
  Serious: Yes (Hospitalization, Other)
  Sender: FDA-Public Use
  Company Number: US-SHIRE-US201704580

PATIENT
  Age: 65 Year
  Sex: Female
  Weight: 130.61 kg

DRUGS (1)
  1. GATTEX [Suspect]
     Active Substance: TEDUGLUTIDE\WATER
     Indication: SHORT-BOWEL SYNDROME
     Dosage: 0.28 ML, 1X/DAY:QD
     Route: 058
     Dates: start: 20160615, end: 20170216

REACTIONS (6)
  - Drug dose omission [Not Recovered/Not Resolved]
  - Nausea [Unknown]
  - Abdominal pain [Unknown]
  - Disturbance in sexual arousal [Unknown]
  - Staphylococcal infection [Unknown]
  - Dehydration [Unknown]

NARRATIVE: CASE EVENT DATE: 20170213
